FAERS Safety Report 12698616 (Version 5)
Quarter: 2016Q4

REPORT INFORMATION
  Report Type: Spontaneous
  Country: GB (occurrence: GB)
  Receive Date: 20160830
  Receipt Date: 20161207
  Transmission Date: 20170207
  Serious: Yes (Other)
  Sender: FDA-Public Use
  Company Number: GB-TEVA-687140ACC

PATIENT
  Age: 84 Year
  Sex: Male

DRUGS (1)
  1. PAMSVAX XL [Suspect]
     Active Substance: TAMSULOSIN HYDROCHLORIDE
     Indication: POLLAKIURIA
     Dosage: 400 MICROGRAM DAILY;
     Route: 048
     Dates: start: 20160805, end: 20160902

REACTIONS (5)
  - Constipation [Recovered/Resolved]
  - Discomfort [Unknown]
  - Sinus congestion [Recovered/Resolved]
  - Fatigue [Unknown]
  - Choking [Unknown]

NARRATIVE: CASE EVENT DATE: 20160807
